FAERS Safety Report 17257939 (Version 1)
Quarter: 2019Q4

REPORT INFORMATION
  Report Type: Spontaneous
  Country: US (occurrence: US)
  Receive Date: 20191217
  Receipt Date: 20191217
  Transmission Date: 20200122
  Serious: Yes (Hospitalization)
  Sender: FDA-Public Use
  Company Number: None

PATIENT
  Sex: Male

DRUGS (16)
  1. TASIGNA [Suspect]
     Active Substance: NILOTINIB
     Indication: CHRONIC MYELOID LEUKAEMIA
     Route: 048
     Dates: start: 20171128
  2. FELODIPINE. [Concomitant]
     Active Substance: FELODIPINE
  3. DICLOFENAC [Concomitant]
     Active Substance: DICLOFENAC
  4. HYDROCO/APAP [Concomitant]
     Active Substance: ACETAMINOPHEN\HYDROCODONE
  5. LISINOPRIL. [Concomitant]
     Active Substance: LISINOPRIL
  6. CEFADROXIL. [Concomitant]
     Active Substance: CEFADROXIL
  7. ALLOPURINOL. [Concomitant]
     Active Substance: ALLOPURINOL
  8. AMLODIPINE [Concomitant]
     Active Substance: AMLODIPINE BESYLATE
  9. MUPIRONCIN CRE 2% [Concomitant]
  10. CLINDAMYCIN. [Concomitant]
     Active Substance: CLINDAMYCIN
  11. LISINO/HCTZ [Concomitant]
     Active Substance: HYDROCHLOROTHIAZIDE\LISINOPRIL
  12. FLORAJEN3 [Concomitant]
  13. LEVOFLOXACIN. [Concomitant]
     Active Substance: LEVOFLOXACIN
  14. TIZANIDINE. [Concomitant]
     Active Substance: TIZANIDINE
  15. PREDNISONE. [Concomitant]
     Active Substance: PREDNISONE
  16. FUROSEMIDE. [Concomitant]
     Active Substance: FUROSEMIDE

REACTIONS (2)
  - Localised infection [None]
  - Product dose omission [None]
